FAERS Safety Report 23218323 (Version 1)
Quarter: 2023Q4

REPORT INFORMATION
  Report Type: Report from Study
  Country: GB (occurrence: GB)
  Receive Date: 20231122
  Receipt Date: 20231122
  Transmission Date: 20240109
  Serious: Yes (Other)
  Sender: FDA-Public Use
  Company Number: GB-ALXN-A202200502

PATIENT
  Age: 41 Year
  Sex: Female

DRUGS (3)
  1. ULTOMIRIS [Suspect]
     Active Substance: RAVULIZUMAB-CWVZ
     Indication: Atypical haemolytic uraemic syndrome
     Dosage: 3300 MG, Q2W
     Route: 065
     Dates: start: 20211104, end: 20211118
  2. ULTOMIRIS [Suspect]
     Active Substance: RAVULIZUMAB-CWVZ
     Dosage: 3600 MG, 8 WEEKLY
     Route: 042
     Dates: start: 20220113
  3. PENICILLIN V [Concomitant]
     Active Substance: PENICILLIN V
     Indication: Infection prophylaxis
     Dosage: UNK, QD
     Route: 065

REACTIONS (21)
  - Renal impairment [Not Recovered/Not Resolved]
  - Depressed mood [Unknown]
  - Chest pain [Unknown]
  - Suspected COVID-19 [Unknown]
  - Restless legs syndrome [Unknown]
  - Hot flush [Unknown]
  - Off label use [Unknown]
  - Neuralgia [Not Recovered/Not Resolved]
  - Tinnitus [Unknown]
  - Neck pain [Not Recovered/Not Resolved]
  - Fistula [Unknown]
  - Dyspnoea exertional [Not Recovered/Not Resolved]
  - Pain in extremity [Not Recovered/Not Resolved]
  - Dyspnoea [Not Recovered/Not Resolved]
  - Arthralgia [Not Recovered/Not Resolved]
  - Myalgia [Not Recovered/Not Resolved]
  - Blood pressure increased [Not Recovered/Not Resolved]
  - Dizziness [Unknown]
  - Fatigue [Not Recovered/Not Resolved]
  - Back pain [Not Recovered/Not Resolved]
  - Headache [Not Recovered/Not Resolved]

NARRATIVE: CASE EVENT DATE: 20211101
